FAERS Safety Report 5905294-9 (Version None)
Quarter: 2008Q4

REPORT INFORMATION
  Report Type: 
  Country: None (occurrence: None)
  Receive Date: 20081001
  Receipt Date: 20080926
  Transmission Date: 20090506
  Serious: Yes (Hospitalization)
  Sender: FDA-Public Use
  Company Number: CN-B.I. PHARMACEUTICALS,INC./RIDGEFIELD-2008-SG-00038SG

PATIENT

DRUGS (2)
  1. COMBIVENT [Suspect]
     Indication: BRONCHIECTASIS
     Dosage: 2.5ML
     Route: 042
     Dates: start: 20080921, end: 20080921
  2. COMBIVENT [Suspect]
     Indication: BRONCHOSPASM

REACTIONS (2)
  - MEDICATION ERROR [None]
  - TACHYCARDIA [None]
